FAERS Safety Report 24891737 (Version 1)
Quarter: 2025Q1

REPORT INFORMATION
  Report Type: Spontaneous
  Country: US (occurrence: US)
  Receive Date: 20250127
  Receipt Date: 20250127
  Transmission Date: 20250408
  Serious: No
  Sender: ALEXION PHARMACEUTICALS
  Company Number: US-ASTRAZENECA-202501USA021076US

PATIENT
  Weight: 89.9 kg

DRUGS (2)
  1. CRESTOR [Interacting]
     Active Substance: ROSUVASTATIN CALCIUM
     Dosage: 10 MILLIGRAM, QD
  2. VYNDAMAX [Interacting]
     Active Substance: TAFAMIDIS
     Dosage: 61 MILLIGRAM, QD

REACTIONS (1)
  - Drug interaction [Unknown]
